FAERS Safety Report 9056528 (Version 1)
Quarter: 2013Q1

REPORT INFORMATION
  Report Type: Spontaneous
  Country: MX (occurrence: MX)
  Receive Date: 20130204
  Receipt Date: 20130204
  Transmission Date: 20140127
  Serious: Yes (Hospitalization)
  Sender: FDA-Public Use
  Company Number: MX-GLAXOSMITHKLINE-A1010638A

PATIENT
  Age: 5 Year
  Sex: Female

DRUGS (7)
  1. FLIXOTIDE [Suspect]
     Indication: PRODUCT USED FOR UNKNOWN INDICATION
     Dosage: 1MGML UNKNOWN
     Route: 042
     Dates: start: 20130125, end: 20130125
  2. COMBIVENT [Concomitant]
  3. PREDNISOLONE [Concomitant]
  4. PREDNISOLONE SODIUM PHOSPHATE [Concomitant]
  5. UNSPECIFIED MEDICATION [Concomitant]
  6. MOMETASONE [Concomitant]
  7. RANISEN [Concomitant]

REACTIONS (6)
  - Anaphylactic shock [Unknown]
  - Incorrect route of drug administration [Recovered/Resolved]
  - Generalised oedema [Unknown]
  - Heart rate increased [Unknown]
  - Blood pressure increased [Unknown]
  - Chest pain [Unknown]
